FAERS Safety Report 18409217 (Version 1)
Quarter: 2020Q4

REPORT INFORMATION
  Report Type: Spontaneous
  Country: FR (occurrence: FR)
  Receive Date: 20201021
  Receipt Date: 20201021
  Transmission Date: 20210114
  Serious: Yes (Hospitalization)
  Sender: FDA-Public Use
  Company Number: NVSC2020FR278162

PATIENT
  Age: 60 Year
  Sex: Male
  Weight: 74.6 kg

DRUGS (3)
  1. CLOZAPINE. [Suspect]
     Active Substance: CLOZAPINE
     Indication: PRODUCT ADMINISTRATION ERROR
     Dosage: 200 MG, QD
     Route: 048
     Dates: start: 20200921, end: 20200921
  2. TRILEPTAL [Suspect]
     Active Substance: OXCARBAZEPINE
     Indication: PRODUCT ADMINISTRATION ERROR
     Dosage: 600 MG, QD
     Route: 048
     Dates: start: 20200921, end: 20200921
  3. VALPROATE SODIUM. [Suspect]
     Active Substance: VALPROATE SODIUM
     Indication: PRODUCT ADMINISTRATION ERROR
     Dosage: 750 MG, QD
     Route: 048
     Dates: start: 20200921, end: 20200921

REACTIONS (5)
  - Wrong product administered [Recovered/Resolved]
  - Hypotension [Recovered/Resolved]
  - Product administration error [Recovered/Resolved]
  - Wrong patient received product [Recovered/Resolved]
  - Somnolence [Recovered/Resolved]

NARRATIVE: CASE EVENT DATE: 20200921
